APPROVED DRUG PRODUCT: CHILDREN'S ALLEGRA ALLERGY
Active Ingredient: FEXOFENADINE HYDROCHLORIDE
Strength: 30MG/5ML
Dosage Form/Route: SUSPENSION;ORAL
Application: N201373 | Product #001
Applicant: CHATTEM INC DBA SANOFI CONSUMER HEALTHCARE
Approved: Jan 24, 2011 | RLD: Yes | RS: Yes | Type: OTC

PATENTS:
Patent 8933097 | Expires: Aug 2, 2030